FAERS Safety Report 8661001 (Version 2)
Quarter: 2013Q4

REPORT INFORMATION
  Report Type: Spontaneous
  Country: US (occurrence: US)
  Receive Date: 20120711
  Receipt Date: 20131101
  Transmission Date: 20140711
  Serious: No
  Sender: FDA-Public Use
  Company Number: US-009507513-1207USA001019

PATIENT
  Age: 18 Year
  Sex: Male

DRUGS (1)
  1. INVANZ [Suspect]
     Indication: OSTEOMYELITIS
     Route: 042

REACTIONS (1)
  - Drug ineffective [Unknown]
